FAERS Safety Report 7294052 (Version 4)
Quarter: 2015Q4

REPORT INFORMATION
  Report Type: Spontaneous
  Country: NO (occurrence: NO)
  Receive Date: 20100225
  Receipt Date: 20151026
  Transmission Date: 20160305
  Serious: Yes (Congenital Anomaly, Other)
  Sender: FDA-Public Use
  Company Number: NO-BRISTOL-MYERS SQUIBB COMPANY-14982037

PATIENT
  Sex: Male
  Weight: 1.6 kg

DRUGS (2)
  1. ATAZANAVIR SULFATE [Suspect]
     Active Substance: ATAZANAVIR SULFATE
     Indication: PRODUCT USED FOR UNKNOWN INDICATION
     Dosage: UNK
     Route: 064
  2. ABACAVIR. [Suspect]
     Active Substance: ABACAVIR
     Indication: PRODUCT USED FOR UNKNOWN INDICATION
     Dosage: UNK
     Route: 064

REACTIONS (8)
  - Congenital jaw malformation [Recovered/Resolved with Sequelae]
  - Aplasia [Recovered/Resolved with Sequelae]
  - Syndactyly [Recovered/Resolved with Sequelae]
  - Talipes [Recovered/Resolved with Sequelae]
  - Premature baby [Recovered/Resolved with Sequelae]
  - Foetal exposure during pregnancy [Unknown]
  - Cleft lip and palate [Recovered/Resolved with Sequelae]
  - Low birth weight baby [Unknown]
